FAERS Safety Report 9248035 (Version 3)
Quarter: 2013Q2

REPORT INFORMATION
  Report Type: Spontaneous
  Country: US (occurrence: US)
  Receive Date: 20130423
  Receipt Date: 20130613
  Transmission Date: 20140414
  Serious: Yes (Other)
  Sender: FDA-Public Use
  Company Number: US-PFIZER INC-2013125393

PATIENT
  Age: 50 Year
  Sex: Female
  Weight: 59.86 kg

DRUGS (4)
  1. CHANTIX [Suspect]
     Indication: SMOKING CESSATION THERAPY
     Dosage: HALF A TABLET OF 0.5MG DAILY
     Route: 048
     Dates: start: 20130401, end: 20130403
  2. CHANTIX [Suspect]
     Dosage: HALF A TABLET OF 0.5MG, 2X/DAY
     Route: 048
     Dates: start: 20130404, end: 20130413
  3. HYDROCHLOROTHIAZIDE [Concomitant]
     Dosage: UNK
  4. LIPITOR [Concomitant]
     Dosage: UNK

REACTIONS (12)
  - Mental impairment [Unknown]
  - Heart rate increased [Recovered/Resolved]
  - Feeling abnormal [Recovered/Resolved]
  - Mood altered [Recovered/Resolved]
  - Anxiety [Recovered/Resolved]
  - Insomnia [Recovered/Resolved]
  - Agitation [Unknown]
  - Nightmare [Unknown]
  - Anger [Unknown]
  - Confusional state [Unknown]
  - Sensory disturbance [Unknown]
  - Listless [Unknown]
